FAERS Safety Report 7320508-9 (Version None)
Quarter: 2011Q1

REPORT INFORMATION
  Report Type: 
  Country: None (occurrence: None)
  Receive Date: 20110228
  Receipt Date: 20110224
  Transmission Date: 20110831
  Serious: Yes (Other)
  Sender: FDA-Public Use
  Company Number: US-BRISTOL-MYERS SQUIBB COMPANY-15569320

PATIENT
  Age: 20 Year
  Sex: Female

DRUGS (3)
  1. CARDIZEM [Concomitant]
  2. ABILIFY [Suspect]
     Dosage: STARTED 2MG FOR A WEEK;DOSE INCREASED TO 5MG.
  3. ZOLOFT [Suspect]

REACTIONS (1)
  - HALLUCINATIONS, MIXED [None]
